FAERS Safety Report 21395054 (Version 2)
Quarter: 2023Q1

REPORT INFORMATION
  Report Type: Report from Study
  Country: BR (occurrence: BR)
  Receive Date: 20220930
  Receipt Date: 20230319
  Transmission Date: 20230418
  Serious: Yes (Hospitalization)
  Sender: FDA-Public Use
  Company Number: BR-JNJFOC-20220952355

PATIENT
  Sex: Female

DRUGS (2)
  1. SIMPONI [Suspect]
     Active Substance: GOLIMUMAB
     Indication: Rheumatoid arthritis
     Route: 058
     Dates: start: 20140516
  2. SIMPONI [Suspect]
     Active Substance: GOLIMUMAB

REACTIONS (1)
  - Infection [Unknown]
